FAERS Safety Report 7781942-6 (Version None)
Quarter: 2011Q3

REPORT INFORMATION
  Report Type: 
  Country: None (occurrence: None)
  Receive Date: 20110927
  Receipt Date: 20110923
  Transmission Date: 20111222
  Serious: Yes (Other)
  Sender: FDA-Public Use
  Company Number: HU-PFIZER INC-2011127286

PATIENT
  Age: 63 Year
  Sex: Female
  Weight: 63 kg

DRUGS (3)
  1. CALCIUM [Concomitant]
     Dosage: UNK
     Dates: start: 20050101
  2. ATORVASTATIN CALCIUM [Suspect]
     Indication: BLOOD CHOLESTEROL INCREASED
     Dosage: 20 MG, 1X/DAY
     Dates: start: 20110413, end: 20110708
  3. DETRALEX [Concomitant]
     Dosage: UNK
     Dates: start: 20110101

REACTIONS (5)
  - HEART RATE IRREGULAR [None]
  - PHARYNGEAL OEDEMA [None]
  - OROPHARYNGEAL PAIN [None]
  - DYSPNOEA [None]
  - MUSCULOSKELETAL PAIN [None]
